FAERS Safety Report 8464886-6 (Version None)
Quarter: 2012Q2

REPORT INFORMATION
  Report Type: 
  Country: None (occurrence: None)
  Receive Date: 20120323
  Receipt Date: 20110928
  Transmission Date: 20120825
  Serious: Yes (Other)
  Sender: FDA-Public Use
  Company Number: 163-21880-11093576

PATIENT
  Age: 60 Year
  Sex: Male
  Weight: 163.8 kg

DRUGS (2)
  1. REVLIMID [Suspect]
     Indication: MULTIPLE MYELOMA
     Dosage: 5 MG, 1 IN 1 D, PO, 5 MG, QD X 21 DAYS, PO
     Route: 048
     Dates: start: 20110901, end: 20110914
  2. REVLIMID [Suspect]
     Indication: MULTIPLE MYELOMA
     Dosage: 5 MG, 1 IN 1 D, PO, 5 MG, QD X 21 DAYS, PO
     Route: 048
     Dates: start: 20110501

REACTIONS (1)
  - HYPERSENSITIVITY [None]
